FAERS Safety Report 24197724 (Version 2)
Quarter: 2024Q3

REPORT INFORMATION
  Report Type: Spontaneous
  Country: US (occurrence: US)
  Receive Date: 20240811
  Receipt Date: 20240903
  Transmission Date: 20241017
  Serious: No
  Sender: JOHNSON AND JOHNSON
  Company Number: US-JNJFOC-20240815967

PATIENT
  Age: 80 Year
  Sex: Female

DRUGS (2)
  1. IMODIUM [Suspect]
     Active Substance: LOPERAMIDE HYDROCHLORIDE
     Indication: Cholecystectomy
     Dosage: 4 TABLETS OR LESS EACH TIME AS NEEDED
     Route: 065
  2. IMODIUM [Suspect]
     Active Substance: LOPERAMIDE HYDROCHLORIDE
     Route: 065

REACTIONS (5)
  - Product use in unapproved indication [Unknown]
  - Product packaging difficult to open [Unknown]
  - Suspected counterfeit product [Unknown]
  - Product distribution issue [Unknown]
  - Therapeutic response unexpected [Unknown]
